FAERS Safety Report 15077172 (Version 1)
Quarter: 2018Q2

REPORT INFORMATION
  Report Type: Report from Study
  Country: KR (occurrence: KR)
  Receive Date: 20180627
  Receipt Date: 20180627
  Transmission Date: 20180711
  Serious: Yes (Other)
  Sender: FDA-Public Use
  Company Number: KR-MYLANLABS-2018M1045784

PATIENT
  Age: 67 Year
  Sex: Male

DRUGS (5)
  1. BASILIXIMAB [Suspect]
     Active Substance: BASILIXIMAB
     Indication: IMMUNOSUPPRESSANT DRUG THERAPY
     Dosage: FOR ONE WEEK DAILY
     Route: 042
  2. SIROLIMUS. [Suspect]
     Active Substance: SIROLIMUS
     Indication: IMMUNOSUPPRESSANT DRUG THERAPY
     Dosage: ACCUMULATIVE DOSE WAS 2158MG AND THE AVERAGE DOSE WAS 1.6MG/DAY
     Route: 065
  3. CYCLOSPORIN [Suspect]
     Active Substance: CYCLOSPORINE
     Indication: IMMUNOSUPPRESSANT DRUG THERAPY
     Dosage: ACCUMULATIVE DOSE WAS 185678MG AND THE AVERAGE DOSE WAS 77.3MG/DAY
     Route: 065
  4. AZATHIOPRINE. [Suspect]
     Active Substance: AZATHIOPRINE
     Indication: IMMUNOSUPPRESSANT DRUG THERAPY
     Dosage: ACCUMULATIVE DOSE WAS 100MG AND THE AVERAGE DOSE WAS 33.3MG/DAY
     Route: 065
  5. MYCOPHENOLATE MOFETIL. [Suspect]
     Active Substance: MYCOPHENOLATE MOFETIL
     Indication: IMMUNOSUPPRESSANT DRUG THERAPY
     Dosage: ACCUMULATIVE DOSE WAS 1000MG AND THE AVERAGE DOSE WAS 1000MG/DAY
     Route: 065

REACTIONS (1)
  - Nonkeratinising carcinoma of nasopharynx [Recovered/Resolved]
